FAERS Safety Report 10103656 (Version 1)
Quarter: 2014Q2

REPORT INFORMATION
  Report Type: Spontaneous
  Country: US (occurrence: US)
  Receive Date: 20140424
  Receipt Date: 20140424
  Transmission Date: 20141212
  Serious: Yes (Hospitalization)
  Sender: FDA-Public Use
  Company Number: US-ACTELION-A-US2014-97469

PATIENT
  Age: 79 Year
  Sex: Male
  Weight: 95.3 kg

DRUGS (3)
  1. VALCHLOR [Suspect]
     Indication: MYCOSIS FUNGOIDES
     Dosage: 60 UNK, UNK
     Route: 061
     Dates: start: 201403, end: 20140401
  2. BRENTUXIMAB [Suspect]
     Dosage: UNK
     Route: 042
     Dates: start: 20140327
  3. NEULASTA [Suspect]
     Dosage: UNK
     Dates: start: 20140328

REACTIONS (8)
  - Myalgia [Recovering/Resolving]
  - Nausea [Recovering/Resolving]
  - Vomiting [Recovering/Resolving]
  - Diarrhoea [Recovering/Resolving]
  - Decreased appetite [Recovering/Resolving]
  - Sleep disorder [Recovering/Resolving]
  - Headache [Recovering/Resolving]
  - Drug dose omission [Recovering/Resolving]
